FAERS Safety Report 5150257-7 (Version None)
Quarter: 2006Q4

REPORT INFORMATION
  Report Type: 
  Country: None (occurrence: None)
  Receive Date: 20061114
  Receipt Date: 20061107
  Transmission Date: 20070319
  Serious: Yes (Other)
  Sender: FDA-Public Use
  Company Number: US-BRISTOL-MYERS SQUIBB COMPANY-13569256

PATIENT
  Age: 87 Year
  Sex: Female

DRUGS (5)
  1. COUMADIN [Suspect]
  2. COZAAR [Suspect]
  3. DEMADEX [Suspect]
  4. TOPROL-XL [Suspect]
  5. NORVASC [Suspect]

REACTIONS (2)
  - CEREBROVASCULAR ACCIDENT [None]
  - MYOCARDIAL INFARCTION [None]
